FAERS Safety Report 19307917 (Version 7)
Quarter: 2025Q1

REPORT INFORMATION
  Report Type: Spontaneous
  Country: US (occurrence: US)
  Receive Date: 20210526
  Receipt Date: 20250311
  Transmission Date: 20250408
  Serious: No
  Sender: PFIZER
  Company Number: US-PFIZER INC-2021247565

PATIENT
  Age: 65 Year
  Sex: Male

DRUGS (1)
  1. XELJANZ XR [Suspect]
     Active Substance: TOFACITINIB CITRATE
     Indication: Arthritis

REACTIONS (5)
  - Gait inability [Unknown]
  - Malaise [Unknown]
  - Pain in extremity [Unknown]
  - Back pain [Unknown]
  - Peripheral swelling [Unknown]
